FAERS Safety Report 7720498-0 (Version None)
Quarter: 2011Q3

REPORT INFORMATION
  Report Type: 
  Country: None (occurrence: None)
  Receive Date: 20110831
  Receipt Date: 20110819
  Transmission Date: 20111222
  Serious: Yes (Other)
  Sender: FDA-Public Use
  Company Number: TR-ELI_LILLY_AND_COMPANY-TR201009000850

PATIENT
  Sex: Male
  Weight: 64 kg

DRUGS (3)
  1. OLANZAPINE + FLUOXETINE HCL [Suspect]
     Dosage: 6/50MG, UNK
     Route: 048
     Dates: start: 20100831
  2. OLANZAPINE + FLUOXETINE HCL [Suspect]
     Dosage: 6/25MG, UNK
     Route: 048
     Dates: start: 20100902, end: 20100914
  3. OLANZAPINE + FLUOXETINE HCL [Suspect]
     Indication: DEPRESSION
     Dosage: 6/25MG, UNK
     Route: 048
     Dates: start: 20100818

REACTIONS (4)
  - FACIAL PAIN [None]
  - FACE OEDEMA [None]
  - ASTHENIA [None]
  - HEADACHE [None]
